FAERS Safety Report 14656318 (Version 3)
Quarter: 2018Q1

REPORT INFORMATION
  Report Type: Spontaneous
  Country: BG (occurrence: BG)
  Receive Date: 20180319
  Receipt Date: 20180327
  Transmission Date: 20180509
  Serious: Yes (Life-Threatening, Hospitalization)
  Sender: FDA-Public Use
  Company Number: BG-ABBVIE-18K-022-2291955-00

PATIENT
  Age: 39 Year
  Sex: Male

DRUGS (4)
  1. FOLATE [Suspect]
     Active Substance: FOLATE SODIUM
     Indication: PRODUCT USED FOR UNKNOWN INDICATION
     Route: 065
  2. HUMIRA [Suspect]
     Active Substance: ADALIMUMAB
     Route: 058
     Dates: start: 201701
  3. METHOTREXATE. [Suspect]
     Active Substance: METHOTREXATE
     Indication: PRODUCT USED FOR UNKNOWN INDICATION
     Route: 030
  4. HUMIRA [Suspect]
     Active Substance: ADALIMUMAB
     Indication: COLITIS ULCERATIVE
     Dosage: DOSE INTENSIFICATION IN SEP-DEC 2016
     Route: 058
     Dates: start: 201603, end: 2016

REACTIONS (19)
  - Toxicity to various agents [Unknown]
  - Fluid intake reduced [Unknown]
  - Stomatitis [Unknown]
  - Hypophagia [Unknown]
  - Vomiting [Unknown]
  - Diarrhoea [Unknown]
  - Dehydration [Unknown]
  - Drug level decreased [Unknown]
  - Skin exfoliation [Unknown]
  - Pyrexia [Unknown]
  - Bone marrow failure [Unknown]
  - Erythema [Unknown]
  - Intestinal ulcer [Unknown]
  - Drug effect decreased [Recovering/Resolving]
  - Alopecia [Unknown]
  - Rash [Unknown]
  - Intestinal mucosal atrophy [Unknown]
  - Anaemia [Unknown]
  - Blister [Unknown]

NARRATIVE: CASE EVENT DATE: 201709
